FAERS Safety Report 24784096 (Version 1)
Quarter: 2024Q4

REPORT INFORMATION
  Report Type: Spontaneous
  Country: US (occurrence: US)
  Receive Date: 20241227
  Receipt Date: 20241227
  Transmission Date: 20250114
  Serious: Yes (Death, Other)
  Sender: DR REDDYS
  Company Number: US-DRL-USA-LIT/USA/24/0019158

PATIENT

DRUGS (8)
  1. TACROLIMUS [Suspect]
     Active Substance: TACROLIMUS
     Indication: Graft versus host disease
  2. CYCLOPHOSPHAMIDE [Suspect]
     Active Substance: CYCLOPHOSPHAMIDE
     Indication: Graft versus host disease
     Dosage: ON DAYS + 3 AND +4
  3. CYCLOPHOSPHAMIDE [Suspect]
     Active Substance: CYCLOPHOSPHAMIDE
     Dosage: 14.5 MG/KG ON DAY^S -6 AND-5
  4. MYCOPHENOLATE MOFETIL [Suspect]
     Active Substance: MYCOPHENOLATE MOFETIL
     Indication: Graft versus host disease
     Dosage: ON DAYS + 3 AND +4
  5. BUSULFAN [Suspect]
     Active Substance: BUSULFAN
     Indication: Graft versus host disease
     Dosage: ON DAYS +3 AND +4?ON DAYS -6,-5, -4, AND -3
  6. FLUDARABINE [Suspect]
     Active Substance: FLUDARABINE PHOSPHATE
     Indication: Graft versus host disease
     Dosage: 40 MG/M2/DAY ON DAYS -6,-5, -4, AND -3
  7. FLUDARABINE [Suspect]
     Active Substance: FLUDARABINE PHOSPHATE
     Dosage: 30 MG/M2/DAY ON DAY^S -6 TO -2
  8. METHOTREXATE [Suspect]
     Active Substance: METHOTREXATE
     Indication: Graft versus host disease

REACTIONS (1)
  - Drug ineffective [Fatal]
